FAERS Safety Report 5710316-4 (Version None)
Quarter: 2008Q2

REPORT INFORMATION
  Report Type: 
  Country: None (occurrence: None)
  Receive Date: 20080418
  Receipt Date: 20080408
  Transmission Date: 20081010
  Serious: Yes (Hospitalization, Other)
  Sender: FDA-Public Use
  Company Number: US-PFIZER INC-2008030771

PATIENT
  Age: 79 Year
  Sex: Female

DRUGS (5)
  1. XANAX [Suspect]
     Dosage: FREQ:AS NEEDED
  2. XANAX XR [Suspect]
  3. CYMBALTA [Suspect]
     Dates: start: 20080101, end: 20080101
  4. REMERON [Concomitant]
  5. SEROQUEL [Concomitant]

REACTIONS (9)
  - ANXIETY [None]
  - BRAIN OEDEMA [None]
  - CONDUCTION DISORDER [None]
  - FALL [None]
  - HYPONATRAEMIA [None]
  - LOSS OF CONSCIOUSNESS [None]
  - NAUSEA [None]
  - SKIN LACERATION [None]
  - SPEECH DISORDER [None]
